FAERS Safety Report 17077927 (Version 6)
Quarter: 2021Q1

REPORT INFORMATION
  Report Type: Report from Study
  Country: DE (occurrence: DE)
  Receive Date: 20191126
  Receipt Date: 20210115
  Transmission Date: 20210419
  Serious: Yes (Other)
  Sender: FDA-Public Use
  Company Number: DE-BAUSCH-BL-2019-062476

PATIENT
  Sex: Female

DRUGS (15)
  1. OCREVUS [Suspect]
     Active Substance: OCRELIZUMAB
     Indication: PRIMARY PROGRESSIVE MULTIPLE SCLEROSIS
     Route: 042
     Dates: start: 20171201
  2. OCREVUS [Suspect]
     Active Substance: OCRELIZUMAB
     Route: 042
     Dates: start: 20190122
  3. CORTISONE [Suspect]
     Active Substance: CORTISONE
     Indication: MACULAR OEDEMA
     Dosage: AS REQUIRED IN LEFT EYE
     Route: 065
  4. OCREVUS [Suspect]
     Active Substance: OCRELIZUMAB
     Route: 042
     Dates: start: 20200722
  5. SERTRALINE [Concomitant]
     Active Substance: SERTRALINE HYDROCHLORIDE
     Indication: PRODUCT USED FOR UNKNOWN INDICATION
     Dates: start: 20200619
  6. DEXA EDO [Suspect]
     Active Substance: DEXAMETHASONE SODIUM PHOSPHATE
     Indication: PRODUCT USED FOR UNKNOWN INDICATION
     Dosage: IN THE LEFT EYE
     Route: 065
  7. RAMIPRIL. [Suspect]
     Active Substance: RAMIPRIL
     Route: 065
  8. OCREVUS [Suspect]
     Active Substance: OCRELIZUMAB
     Route: 042
     Dates: start: 20190724
  9. OCREVUS [Suspect]
     Active Substance: OCRELIZUMAB
     Route: 042
     Dates: start: 20201215
  10. OCREVUS [Suspect]
     Active Substance: OCRELIZUMAB
     Route: 042
     Dates: start: 20200122
  11. RAMIPRIL. [Suspect]
     Active Substance: RAMIPRIL
     Indication: PRODUCT USED FOR UNKNOWN INDICATION
     Route: 065
  12. RAMIPRIL. [Suspect]
     Active Substance: RAMIPRIL
     Route: 065
  13. DEKRISTOL [Concomitant]
     Active Substance: CHOLECALCIFEROL
     Indication: PRODUCT USED FOR UNKNOWN INDICATION
  14. L?THYROXIN [Concomitant]
     Active Substance: LEVOTHYROXINE SODIUM
     Indication: PRODUCT USED FOR UNKNOWN INDICATION
  15. L?THYROXIN [Concomitant]
     Active Substance: LEVOTHYROXINE SODIUM

REACTIONS (60)
  - Hemiparesis [Not Recovered/Not Resolved]
  - Hyperacusis [Not Recovered/Not Resolved]
  - Lip erythema [Not Recovered/Not Resolved]
  - Decreased appetite [Recovered/Resolved]
  - Blood cholesterol increased [Recovered/Resolved]
  - Muscle disorder [Recovering/Resolving]
  - Somnolence [Recovered/Resolved]
  - Fall [Unknown]
  - Muscular weakness [Recovered/Resolved]
  - Hypoaesthesia [Not Recovered/Not Resolved]
  - Iritis [Recovering/Resolving]
  - Central nervous system lesion [Not Recovered/Not Resolved]
  - Memory impairment [Not Recovered/Not Resolved]
  - Paraesthesia [Recovered/Resolved]
  - Macular oedema [Not Recovered/Not Resolved]
  - Arthralgia [Not Recovered/Not Resolved]
  - Taste disorder [Not Recovered/Not Resolved]
  - Chills [Not Recovered/Not Resolved]
  - Muscular weakness [Recovering/Resolving]
  - Asthenia [Recovered/Resolved]
  - Drug intolerance [Recovered/Resolved]
  - Abnormal sensation in eye [Not Recovered/Not Resolved]
  - Drug ineffective [Unknown]
  - Hypertension [Recovered/Resolved]
  - Raynaud^s phenomenon [Not Recovered/Not Resolved]
  - Restlessness [Recovered/Resolved]
  - Mobility decreased [Recovered/Resolved]
  - Erythema [Recovered/Resolved]
  - Muscular weakness [Unknown]
  - Depression [Recovered/Resolved]
  - Iliotibial band syndrome [Recovering/Resolving]
  - Listless [Recovered/Resolved]
  - Therapeutic product effect decreased [Unknown]
  - Fatigue [Recovering/Resolving]
  - Hair texture abnormal [Recovered/Resolved]
  - Visual impairment [Not Recovered/Not Resolved]
  - Crying [Recovered/Resolved]
  - Blood potassium decreased [Recovered/Resolved]
  - Pain [Recovering/Resolving]
  - Hypercholesterolaemia [Unknown]
  - Residual urine volume increased [Not Recovered/Not Resolved]
  - Urinary tract infection [Recovered/Resolved]
  - Bladder dysfunction [Not Recovered/Not Resolved]
  - Headache [Not Recovered/Not Resolved]
  - Alopecia [Recovering/Resolving]
  - Arrhythmia [Recovered/Resolved]
  - Hyperaesthesia [Recovering/Resolving]
  - Dry skin [Recovering/Resolving]
  - Gait disturbance [Not Recovered/Not Resolved]
  - Ocular hyperaemia [Not Recovered/Not Resolved]
  - Magnetic resonance imaging brain abnormal [Not Recovered/Not Resolved]
  - Onychoclasis [Recovered/Resolved]
  - Vestibular disorder [Not Recovered/Not Resolved]
  - Flatulence [Recovered/Resolved]
  - Photosensitivity reaction [Recovering/Resolving]
  - Constipation [Recovered/Resolved]
  - Micturition urgency [Recovered/Resolved]
  - Muscle spasticity [Recovering/Resolving]
  - Visual impairment [Not Recovered/Not Resolved]
  - Scleral hyperaemia [Not Recovered/Not Resolved]

NARRATIVE: CASE EVENT DATE: 20171201
